FAERS Safety Report 5062750-6 (Version None)
Quarter: 2006Q3

REPORT INFORMATION
  Report Type: 
  Country: None (occurrence: None)
  Receive Date: 20060724
  Receipt Date: 20060707
  Transmission Date: 20061208
  Serious: Yes (Other)
  Sender: FDA-Public Use
  Company Number: DE-2004-035876

PATIENT
  Age: 44 Year
  Sex: Female
  Weight: 225 kg

DRUGS (1)
  1. BETASERON [Suspect]
     Indication: MULTIPLE SCLEROSIS
     Dosage: 1 AMP, EVERY 2D, SUBCUTANEOUS
     Route: 058
     Dates: start: 20020601

REACTIONS (3)
  - LIPOEDEMA [None]
  - LYMPHANGITIS [None]
  - WEIGHT INCREASED [None]
